FAERS Safety Report 5508791-3 (Version None)
Quarter: 2007Q4

REPORT INFORMATION
  Report Type: 
  Country: None (occurrence: None)
  Receive Date: 20071107
  Receipt Date: 20071101
  Transmission Date: 20080405
  Serious: Yes (Other)
  Sender: FDA-Public Use
  Company Number: B0494300A

PATIENT
  Age: 30 Day
  Sex: Male
  Weight: 4.6 kg

DRUGS (5)
  1. ZIDOVUDINE [Suspect]
     Indication: ANTIVIRAL PROPHYLAXIS
     Dosage: 4MGK SEE DOSAGE TEXT
     Route: 048
     Dates: start: 20070925
  2. NEVIRAPINE [Suspect]
     Indication: ANTIVIRAL PROPHYLAXIS
     Dosage: 6MG SINGLE DOSE
     Route: 048
     Dates: start: 20070925, end: 20070925
  3. COMBIVIR [Suspect]
     Indication: ANTIVIRAL PROPHYLAXIS
     Dosage: 1TAB TWICE PER DAY
     Dates: start: 20070521
  4. NEVIRAPINE [Suspect]
     Dosage: 200MG SEE DOSAGE TEXT
     Dates: start: 20070521
  5. ZIDOVUDINE [Suspect]

REACTIONS (1)
  - NEUTROPHIL COUNT [None]
